FAERS Safety Report 24989577 (Version 1)
Quarter: 2025Q1

REPORT INFORMATION
  Report Type: Report from Study
  Country: US (occurrence: US)
  Receive Date: 20250220
  Receipt Date: 20250220
  Transmission Date: 20250409
  Serious: Yes (Other)
  Sender: ABBVIE
  Company Number: US-ABBVIE-6138752

PATIENT
  Sex: Female

DRUGS (1)
  1. CREON [Suspect]
     Active Substance: PANCRELIPASE AMYLASE\PANCRELIPASE LIPASE\PANCRELIPASE PROTEASE
     Indication: Product used for unknown indication
     Route: 048
     Dates: start: 20240915

REACTIONS (7)
  - Gastrointestinal disorder [Recovering/Resolving]
  - Poor quality sleep [Unknown]
  - Back pain [Unknown]
  - Diarrhoea [Unknown]
  - Vomiting [Unknown]
  - Hypophagia [Unknown]
  - Pancreatic failure [Unknown]
